FAERS Safety Report 7308112-X (Version None)
Quarter: 2011Q1

REPORT INFORMATION
  Report Type: 
  Country: None (occurrence: None)
  Receive Date: 20110223
  Receipt Date: 20110216
  Transmission Date: 20110831
  Serious: Yes (Hospitalization, Other)
  Sender: FDA-Public Use
  Company Number: CA-BAYER-2011-015149

PATIENT
  Sex: Male
  Weight: 57 kg

DRUGS (1)
  1. NEXAVAR [Suspect]

REACTIONS (2)
  - HAEMOGLOBIN ABNORMAL [None]
  - GASTRIC VARICES HAEMORRHAGE [None]
